FAERS Safety Report 9434763 (Version 3)
Quarter: 2013Q4

REPORT INFORMATION
  Report Type: Spontaneous
  Country: GB (occurrence: GB)
  Receive Date: 20130801
  Receipt Date: 20131114
  Transmission Date: 20140711
  Serious: Yes (Hospitalization, Other)
  Sender: FDA-Public Use
  Company Number: GB-PFIZER INC-2013220853

PATIENT
  Age: 34 Year
  Sex: Female

DRUGS (8)
  1. IBUPROFEN [Suspect]
     Indication: INTERVERTEBRAL DISC PROTRUSION
     Dosage: 400 MG, 3X/DAY
     Route: 048
     Dates: end: 20130716
  2. DULOXETINE [Concomitant]
     Dosage: UNK
  3. BENDROFLUMETHIAZIDE [Concomitant]
     Dosage: UNK
  4. RAMIPRIL [Concomitant]
     Dosage: UNK
  5. CO-CODAMOL [Concomitant]
     Dosage: 30/500
  6. AMITRIPTYLINE [Concomitant]
     Dosage: TAKES AS NEEDED
  7. DIAZEPAM [Concomitant]
     Indication: NECK PAIN
     Dosage: AS NEEDED
  8. PROPRANOLOL [Concomitant]
     Dosage: AS NEEDED

REACTIONS (3)
  - Gastrooesophageal reflux disease [Recovering/Resolving]
  - Gastric ulcer [Recovering/Resolving]
  - Haematemesis [Recovered/Resolved]
